FAERS Safety Report 21859624 (Version 2)
Quarter: 2023Q1

REPORT INFORMATION
  Report Type: Spontaneous
  Country: DE (occurrence: DE)
  Receive Date: 20230113
  Receipt Date: 20230203
  Transmission Date: 20230417
  Serious: Yes (Death, Hospitalization, Other)
  Sender: FDA-Public Use
  Company Number: DE-002147023-NVSC2022DE259659

PATIENT
  Sex: Female

DRUGS (7)
  1. TAXOL [Suspect]
     Active Substance: PACLITAXEL
     Indication: Breast cancer
     Dosage: 80 UNK (2 X EVERY 7 DAYS )
     Route: 065
     Dates: start: 201801, end: 2018
  2. CYCLOPHOSPHAMIDE [Suspect]
     Active Substance: CYCLOPHOSPHAMIDE
     Indication: Adjuvant therapy
     Dosage: UNK
     Route: 042
  3. CYCLOPHOSPHAMIDE [Suspect]
     Active Substance: CYCLOPHOSPHAMIDE
     Indication: Breast cancer
  4. TAXOTERE [Suspect]
     Active Substance: DOCETAXEL
     Indication: Adjuvant therapy
     Dosage: UNK
     Route: 065
  5. TAMOXIFEN [Suspect]
     Active Substance: TAMOXIFEN
     Indication: Breast cancer
     Dosage: UNK
     Route: 048
  6. PENICILLIN [Suspect]
     Active Substance: PENICILLIN
     Indication: Decompression sickness
     Dosage: UNK
     Route: 065
  7. BEVACIZUMAB [Concomitant]
     Active Substance: BEVACIZUMAB
     Indication: Product used for unknown indication
     Dosage: 10 MG/KG (8 EVERY 5 DAYS)
     Route: 065
     Dates: start: 201801

REACTIONS (6)
  - Death [Fatal]
  - Hypersensitivity [Recovered/Resolved]
  - Metastases to skin [Unknown]
  - Disease recurrence [Unknown]
  - Malignant pleural effusion [Unknown]
  - Drug hypersensitivity [Not Recovered/Not Resolved]

NARRATIVE: CASE EVENT DATE: 20221016
